FAERS Safety Report 7888780-4 (Version None)
Quarter: 2011Q4

REPORT INFORMATION
  Report Type: 
  Country: None (occurrence: None)
  Receive Date: 20111031
  Receipt Date: 20111025
  Transmission Date: 20120403
  Serious: Yes (Life-Threatening, Other)
  Sender: FDA-Public Use
  Company Number: 2011SP043743

PATIENT
  Age: 49 Year
  Sex: Female

DRUGS (12)
  1. SAPHRIS [Suspect]
     Indication: BIPOLAR I DISORDER
     Dosage: 10 MG;BID;SL
     Route: 060
     Dates: start: 20110913, end: 20110914
  2. NORTRIPTYLINE HCL [Concomitant]
  3. HYDROCHLORTHIAZIDE [Concomitant]
  4. ZOCOR [Concomitant]
  5. SEROQUEL [Concomitant]
  6. PREVACID [Concomitant]
  7. AMBIEN CR [Concomitant]
  8. KLONOPIN [Concomitant]
  9. ADDERALL XR 10 [Concomitant]
  10. PHENERGAN HCL [Concomitant]
  11. LISINOPRIL [Concomitant]
  12. SYNTHROID [Concomitant]

REACTIONS (6)
  - PANIC ATTACK [None]
  - RASH [None]
  - EXCORIATION [None]
  - EAR DISORDER [None]
  - SCAR [None]
  - BLISTER [None]
